FAERS Safety Report 24659410 (Version 2)
Quarter: 2025Q1

REPORT INFORMATION
  Report Type: Spontaneous
  Country: US (occurrence: US)
  Receive Date: 20241125
  Receipt Date: 20250226
  Transmission Date: 20250408
  Serious: Yes (Other)
  Sender: BAYER HEALTHCARE PHARMACEUTICALS INC.
  Company Number: US-BAYER-2024A166143

PATIENT
  Age: 56 Year
  Sex: Female

DRUGS (1)
  1. JIVI [Suspect]
     Active Substance: DAMOCTOCOG ALFA PEGOL
     Indication: Factor VIII deficiency
     Route: 042
     Dates: start: 202211

REACTIONS (4)
  - Haemarthrosis [None]
  - Haemarthrosis [None]
  - Limb injury [None]
  - Food allergy [None]

NARRATIVE: CASE EVENT DATE: 20241113
